FAERS Safety Report 15606062 (Version 10)
Quarter: 2025Q3

REPORT INFORMATION
  Report Type: Report from Study
  Country: BR (occurrence: BR)
  Receive Date: 20181112
  Receipt Date: 20250715
  Transmission Date: 20251020
  Serious: Yes (Other)
  Sender: NOVARTIS
  Company Number: PHHY2018BR150735

PATIENT
  Age: 61 Year
  Sex: Female
  Weight: 72 kg

DRUGS (6)
  1. COSENTYX [Suspect]
     Active Substance: SECUKINUMAB
     Indication: Psoriatic arthropathy
     Dosage: 150 MG, QMO
     Route: 058
     Dates: start: 20180419
  2. COSENTYX [Suspect]
     Active Substance: SECUKINUMAB
     Dosage: 150 MG, QMO
     Route: 058
     Dates: start: 20180822, end: 20180920
  3. COSENTYX [Suspect]
     Active Substance: SECUKINUMAB
     Route: 065
  4. COSENTYX [Suspect]
     Active Substance: SECUKINUMAB
     Route: 065
  5. ANASTROZOLE [Suspect]
     Active Substance: ANASTROZOLE
     Indication: Breast cancer
     Dosage: 1 MG, QD
     Route: 048
     Dates: start: 20181118
  6. VALSARTAN [Concomitant]
     Active Substance: VALSARTAN
     Indication: Blood pressure abnormal
     Dosage: 160 MG, QD
     Route: 048

REACTIONS (12)
  - Breast discharge [Unknown]
  - Breast cancer [Recovered/Resolved]
  - Breast pain [Unknown]
  - Depression [Unknown]
  - Skin burning sensation [Recovered/Resolved]
  - Arthropathy [Not Recovered/Not Resolved]
  - Pain [Not Recovered/Not Resolved]
  - Agitation [Unknown]
  - Depressed mood [Recovering/Resolving]
  - Weight decreased [Unknown]
  - Insomnia [Unknown]
  - Crying [Unknown]

NARRATIVE: CASE EVENT DATE: 20180801
